FAERS Safety Report 5338523-3 (Version None)
Quarter: 2007Q2

REPORT INFORMATION
  Report Type: 
  Country: None (occurrence: None)
  Receive Date: 20070405
  Receipt Date: 20061106
  Transmission Date: 20071010
  Serious: No
  Sender: FDA-Public Use
  Company Number: US200611001183

PATIENT
  Age: 44 Year
  Sex: Female

DRUGS (5)
  1. CYMBALTA [Suspect]
     Indication: DEPRESSION
     Dosage: 60 MG DAILY (1/D)
     Dates: start: 20061001, end: 20061101
  2. METHADONE HCL [Concomitant]
  3. VERAPAMIL [Concomitant]
  4. COUMADIN [Concomitant]
  5. PAXIL [Concomitant]

REACTIONS (7)
  - AGITATION [None]
  - ANGER [None]
  - CRYING [None]
  - DEPRESSED MOOD [None]
  - INSOMNIA [None]
  - NERVOUSNESS [None]
  - SUICIDAL IDEATION [None]
